FAERS Safety Report 18907760 (Version 1)
Quarter: 2021Q1

REPORT INFORMATION
  Report Type: Spontaneous
  Country: IN (occurrence: IN)
  Receive Date: 20210218
  Receipt Date: 20210218
  Transmission Date: 20210420
  Serious: Yes (Life-Threatening, Hospitalization)
  Sender: FDA-Public Use
  Company Number: IN-NEBO-PC006542

PATIENT
  Age: 35 Year
  Sex: Female

DRUGS (1)
  1. JILAZO [Suspect]
     Active Substance: IRON ISOMALTOSIDE 1000
     Indication: ANAEMIA
     Route: 042
     Dates: start: 20210204, end: 20210204

REACTIONS (4)
  - Loss of consciousness [Recovered/Resolved]
  - Erythema [Recovered/Resolved]
  - Piloerection [Recovered/Resolved]
  - Dyspnoea [Recovered/Resolved]

NARRATIVE: CASE EVENT DATE: 20210204
